FAERS Safety Report 14110400 (Version 1)
Quarter: 2017Q4

REPORT INFORMATION
  Report Type: Spontaneous
  Country: US (occurrence: US)
  Receive Date: 20171020
  Receipt Date: 20171020
  Transmission Date: 20180321
  Serious: No
  Sender: FDA-Public Use
  Company Number: US-PFIZER INC-2017453056

PATIENT
  Age: 67 Year
  Sex: Male
  Weight: 80.29 kg

DRUGS (2)
  1. VFEND [Suspect]
     Active Substance: VORICONAZOLE
     Indication: HISTOPLASMOSIS DISSEMINATED
     Dosage: 150 MG, 2X/DAY ON DAY ONE
     Dates: start: 201709
  2. VFEND [Suspect]
     Active Substance: VORICONAZOLE
     Indication: RENAL TRANSPLANT
     Dosage: 200 MG, 2X/DAY
     Route: 048
     Dates: end: 201710

REACTIONS (7)
  - Oedema [Recovering/Resolving]
  - Diarrhoea [Recovering/Resolving]
  - Tremor [Recovering/Resolving]
  - Nightmare [Recovering/Resolving]
  - Dizziness [Recovering/Resolving]
  - Pollakiuria [Recovering/Resolving]
  - Product use in unapproved indication [Unknown]
